FAERS Safety Report 7667864-X (Version None)
Quarter: 2011Q3

REPORT INFORMATION
  Report Type: 
  Country: None (occurrence: None)
  Receive Date: 20110806
  Receipt Date: 20110713
  Transmission Date: 20111222
  Serious: No
  Sender: FDA-Public Use
  Company Number: US-ROXANE LABORATORIES, INC.-2011-RO-01036RO

PATIENT
  Sex: Male

DRUGS (1)
  1. CODEINE SUL TAB [Suspect]
     Indication: PAIN

REACTIONS (4)
  - ASTHENIA [None]
  - GAIT DISTURBANCE [None]
  - HEADACHE [None]
  - VISION BLURRED [None]
